FAERS Safety Report 7046031-7 (Version None)
Quarter: 2010Q4

REPORT INFORMATION
  Report Type: 
  Country: None (occurrence: None)
  Receive Date: 20101013
  Receipt Date: 20101013
  Transmission Date: 20110411
  Serious: No
  Sender: FDA-Public Use
  Company Number: None

PATIENT
  Age: 13 Year
  Sex: Male
  Weight: 63.5036 kg

DRUGS (4)
  1. RISPERIDONE [Suspect]
     Indication: ECONOMIC PROBLEM
     Dosage: 2 AND 1/2 TABS DAILY PO
     Route: 048
     Dates: start: 20090608, end: 20090616
  2. RISPERIDONE [Suspect]
     Indication: PRODUCT SUBSTITUTION ISSUE
     Dosage: 2 AND 1/2 TABS DAILY PO
     Route: 048
     Dates: start: 20090608, end: 20090616
  3. RISPERIDONE [Suspect]
     Indication: ECONOMIC PROBLEM
     Dosage: 2 AND 1/2 TABS DAILY PO
     Route: 048
     Dates: start: 20101002, end: 20101008
  4. RISPERIDONE [Suspect]
     Indication: PRODUCT SUBSTITUTION ISSUE
     Dosage: 2 AND 1/2 TABS DAILY PO
     Route: 048
     Dates: start: 20101002, end: 20101008

REACTIONS (4)
  - AFFECTIVE DISORDER [None]
  - ANXIETY [None]
  - PRODUCT SUBSTITUTION ISSUE [None]
  - SLEEP DISORDER [None]
